FAERS Safety Report 6121910-3 (Version None)
Quarter: 2009Q1

REPORT INFORMATION
  Report Type: 
  Country: None (occurrence: None)
  Receive Date: 20090313
  Receipt Date: 20090226
  Transmission Date: 20090719
  Serious: Yes (Hospitalization)
  Sender: FDA-Public Use
  Company Number: 2009S1003548

PATIENT
  Age: 87 Year
  Sex: Male

DRUGS (10)
  1. BISOPROLOL FUMARATE [Suspect]
     Indication: CORONARY ARTERY DISEASE
     Dosage: 10 MG; DAILY; ORAL
     Route: 048
  2. DIGITOXIN INJ [Suspect]
     Indication: TACHYARRHYTHMIA
     Dosage: 0.07 MG; DAILY; ORAL
     Route: 048
     Dates: end: 20080602
  3. ALLOPURINOL [Concomitant]
  4. ENALAPRIL MALEATE [Concomitant]
  5. FALITHROM [Concomitant]
  6. INSULIN ACTRAPID [Concomitant]
  7. INSULIN ACTRAPID HUMAN [Concomitant]
  8. INSULIN PROTAPHAN HUMAN [Concomitant]
  9. LOCOL [Concomitant]
  10. TORASEMIDE [Concomitant]

REACTIONS (1)
  - BRADYARRHYTHMIA [None]
